FAERS Safety Report 25179637 (Version 1)
Quarter: 2025Q2

REPORT INFORMATION
  Report Type: Spontaneous
  Country: US (occurrence: None)
  Receive Date: 20250408
  Receipt Date: 20250408
  Transmission Date: 20250717
  Serious: No
  Sender: FDA-CTU
  Company Number: None

PATIENT
  Age: 53 Year
  Sex: Male

DRUGS (1)
  1. XDEMVY [Suspect]
     Active Substance: LOTILANER
     Indication: Acariasis
     Dosage: 1 GTT DRO(S)  TWICE A DY OPHTHALMIC?
     Route: 047

REACTIONS (1)
  - Eye pain [None]

NARRATIVE: CASE EVENT DATE: 20250208
